FAERS Safety Report 4462844-X (Version None)
Quarter: 2004Q3

REPORT INFORMATION
  Report Type: 
  Country: None (occurrence: None)
  Receive Date: 20040927
  Receipt Date: 20040909
  Transmission Date: 20050211
  Serious: Yes (Death, Hospitalization)
  Sender: FDA-Public Use
  Company Number: 2004PL000049

PATIENT
  Age: 49 Year
  Sex: Female
  Weight: 50 kg

DRUGS (1)
  1. AZATHIOPRINE [Suspect]
     Indication: MULTIPLE SCLEROSIS
     Dosage: 45 GM;ORAL
     Route: 048

REACTIONS (9)
  - CYTOGENETIC ANALYSIS ABNORMAL [None]
  - DEPRESSED LEVEL OF CONSCIOUSNESS [None]
  - DISEASE RECURRENCE [None]
  - MYELODYSPLASTIC SYNDROME [None]
  - NERVOUS SYSTEM DISORDER [None]
  - PANCYTOPENIA [None]
  - POST PROCEDURAL HAEMORRHAGE [None]
  - SINUS TACHYCARDIA [None]
  - SUBDURAL HAEMATOMA [None]
